FAERS Safety Report 7350603-X (Version None)
Quarter: 2011Q1

REPORT INFORMATION
  Report Type: 
  Country: None (occurrence: None)
  Receive Date: 20110314
  Receipt Date: 20110302
  Transmission Date: 20110831
  Serious: Yes (Disabling, Other)
  Sender: FDA-Public Use
  Company Number: JP-MERCK-1102USA02535

PATIENT
  Age: 54 Year
  Sex: Male

DRUGS (5)
  1. INDOMETHACIN SODIUM [Suspect]
     Indication: BRONCHITIS
     Route: 048
     Dates: start: 20110125, end: 20110127
  2. MEDICON [Concomitant]
     Route: 048
     Dates: start: 20110125
  3. AZULEMIC [Concomitant]
     Route: 048
     Dates: start: 20110125, end: 20110127
  4. NOROXIN [Suspect]
     Indication: BRONCHITIS
     Route: 048
     Dates: start: 20110125, end: 20110127
  5. BUFFERIN [Suspect]
     Indication: BRONCHITIS
     Route: 048
     Dates: start: 20110124, end: 20110130

REACTIONS (3)
  - PNEUMONITIS [None]
  - HEPATIC FUNCTION ABNORMAL [None]
  - PLATELET COUNT DECREASED [None]
